FAERS Safety Report 7414533-7 (Version None)
Quarter: 2011Q2

REPORT INFORMATION
  Report Type: 
  Country: None (occurrence: None)
  Receive Date: 20110414
  Receipt Date: 20110407
  Transmission Date: 20111010
  Serious: Yes (Hospitalization)
  Sender: FDA-Public Use
  Company Number: US-SANOFI-AVENTIS-2011SA021883

PATIENT
  Sex: Male

DRUGS (1)
  1. CARAC [Suspect]
     Route: 065

REACTIONS (1)
  - DIZZINESS [None]
